FAERS Safety Report 26135599 (Version 1)
Quarter: 2025Q4

REPORT INFORMATION
  Report Type: Spontaneous
  Country: US (occurrence: None)
  Receive Date: 20251208
  Receipt Date: 20251208
  Transmission Date: 20260118
  Serious: Yes (Other)
  Sender: FDA-CTU
  Company Number: None

PATIENT
  Age: 62 Year
  Sex: Male
  Weight: 85.95 kg

DRUGS (1)
  1. REPATHA [Suspect]
     Active Substance: EVOLOCUMAB
     Dosage: OTHER FREQUENCY : EVERY 14 DAYS;
     Route: 058
     Dates: start: 20240308

REACTIONS (3)
  - Injection site injury [None]
  - Injection site haemorrhage [None]
  - Injection site scab [None]

NARRATIVE: CASE EVENT DATE: 20251016
